FAERS Safety Report 5113308-1 (Version None)
Quarter: 2006Q3

REPORT INFORMATION
  Report Type: 
  Country: None (occurrence: None)
  Receive Date: 20060920
  Receipt Date: 20060905
  Transmission Date: 20061208
  Serious: Yes (Death)
  Sender: FDA-Public Use
  Company Number: ISSUE NO.27

PATIENT
  Sex: Female

DRUGS (1)
  1. BELLADONNA ALKALOIDS W/ PHENOBARBITAL [Suspect]

REACTIONS (2)
  - MULTI-ORGAN FAILURE [None]
  - STEVENS-JOHNSON SYNDROME [None]
